FAERS Safety Report 11637716 (Version 2)
Quarter: 2015Q4

REPORT INFORMATION
  Report Type: Report from Study
  Country: ES (occurrence: ES)
  Receive Date: 20151016
  Receipt Date: 20151023
  Transmission Date: 20160304
  Serious: Yes (Other)
  Sender: FDA-Public Use
  Company Number: ES-ABBVIE-15P-144-1478869-00

PATIENT
  Age: 72 Year
  Sex: Male

DRUGS (1)
  1. DUODOPA [Suspect]
     Active Substance: CARBIDOPA\LEVODOPA
     Indication: PARKINSON^S DISEASE
     Route: 065
     Dates: start: 20140201

REACTIONS (9)
  - Device dislocation [Unknown]
  - General physical health deterioration [Unknown]
  - Salivary hypersecretion [Unknown]
  - Aphasia [Unknown]
  - Musculoskeletal stiffness [Unknown]
  - Device occlusion [Unknown]
  - Depression [Unknown]
  - Mobility decreased [Unknown]
  - Postural reflex impairment [Unknown]

NARRATIVE: CASE EVENT DATE: 201509
